FAERS Safety Report 14842377 (Version 3)
Quarter: 2018Q3

REPORT INFORMATION
  Report Type: Spontaneous
  Country: DK (occurrence: DK)
  Receive Date: 20180503
  Receipt Date: 20180823
  Transmission Date: 20181010
  Serious: Yes (Disabling)
  Sender: FDA-Public Use
  Company Number: DK-BIOFRONTERA-000478

PATIENT
  Age: 69 Year
  Sex: Female

DRUGS (6)
  1. METOPROLOL SUCCINATE 50 MG [Concomitant]
     Active Substance: METOPROLOL SUCCINATE
     Indication: HEART RATE IRREGULAR
     Route: 048
     Dates: start: 20120925
  2. HJERTEMAGNYL 75 MG [Concomitant]
     Indication: ANTICOAGULANT THERAPY
     Route: 048
     Dates: start: 20110413
  3. AMELUZ [Suspect]
     Active Substance: AMINOLEVULINIC ACID HYDROCHLORIDE
     Indication: ACTINIC KERATOSIS
     Route: 061
     Dates: start: 20160601, end: 20170504
  4. METVIX [Suspect]
     Active Substance: METHYL AMINOLEVULINATE HYDROCHLORIDE
     Indication: ACTINIC KERATOSIS
     Route: 061
     Dates: start: 20160829, end: 20170504
  5. AMLODIPINE 10 MG [Concomitant]
     Active Substance: AMLODIPINE BESYLATE
     Indication: HYPERTENSION
     Route: 048
     Dates: start: 20120202
  6. SPARKAL 50 + 5 MG [Concomitant]
     Indication: HYPERTENSION
     Route: 048

REACTIONS (17)
  - Swelling face [Recovering/Resolving]
  - Pain of skin [Recovering/Resolving]
  - Off label use [Recovered/Resolved]
  - Skin wound [Recovering/Resolving]
  - Loss of personal independence in daily activities [Unknown]
  - Pruritus [Recovering/Resolving]
  - Skin burning sensation [Recovering/Resolving]
  - Erythema [Recovering/Resolving]
  - Product administered at inappropriate site [Recovered/Resolved]
  - Hypersensitivity [Recovering/Resolving]
  - Eczema [Recovering/Resolving]
  - Rash [Recovering/Resolving]
  - Burning sensation [Recovering/Resolving]
  - Hypersensitivity [Recovering/Resolving]
  - Psoriasis [Unknown]
  - Drug hypersensitivity [Not Recovered/Not Resolved]
  - Photosensitivity reaction [Recovering/Resolving]

NARRATIVE: CASE EVENT DATE: 2016
